FAERS Safety Report 8054805-9 (Version None)
Quarter: 2012Q1

REPORT INFORMATION
  Report Type: 
  Country: None (occurrence: None)
  Receive Date: 20120119
  Receipt Date: 20120109
  Transmission Date: 20120608
  Serious: Yes (Hospitalization)
  Sender: FDA-Public Use
  Company Number: US-BAYER-201035043NA

PATIENT
  Age: 27 Year
  Sex: Female
  Weight: 98 kg

DRUGS (8)
  1. YASMIN [Suspect]
     Indication: PRODUCT USED FOR UNKNOWN INDICATION
     Dosage: UNK
     Route: 048
     Dates: start: 20070701, end: 20090201
  2. DROSPIRENONE AND ETHINYL ESTRADIOL [Suspect]
     Dosage: UNK
     Dates: start: 20100701
  3. TYLENOL PM EXTRA STRENGTH [DIPHENHYDRAMINE HYDROCHLORIDE,PARACETAM [Concomitant]
     Route: 048
  4. CITALOPRAM HYDROBROMIDE [Concomitant]
     Indication: DEPRESSION
     Dosage: UNK
     Route: 048
     Dates: start: 20080908, end: 20081008
  5. LORAZEPAM [Concomitant]
     Dosage: UNK
     Route: 048
     Dates: start: 20080908
  6. DROSPIRENONE AND ETHINYL ESTRADIOL [Suspect]
     Indication: CONTRACEPTION
     Dosage: UNK
     Dates: start: 20090501, end: 20090801
  7. ALPRAZOLAM [Concomitant]
     Indication: ANXIETY
     Dosage: UNK
     Route: 048
     Dates: start: 20080913, end: 20081003
  8. MULTI-VITAMIN [Concomitant]
     Route: 048

REACTIONS (10)
  - SCAR [None]
  - FLATULENCE [None]
  - DEPRESSION [None]
  - CHOLECYSTECTOMY [None]
  - DYSPEPSIA [None]
  - DIARRHOEA [None]
  - ANXIETY [None]
  - ABDOMINAL DISTENSION [None]
  - CHOLECYSTITIS CHRONIC [None]
  - CONSTIPATION [None]
